FAERS Safety Report 9805638 (Version 1)
Quarter: 2014Q1

REPORT INFORMATION
  Report Type: Spontaneous
  Country: US (occurrence: None)
  Receive Date: 20140108
  Receipt Date: 20140108
  Transmission Date: 20141002
  Serious: Yes (Hospitalization)
  Sender: FDA-Public Use
  Company Number: None

PATIENT
  Age: 73 Year
  Sex: Female
  Weight: 50.2 kg

DRUGS (2)
  1. METHOXYAMINE [Suspect]
     Indication: LUNG NEOPLASM MALIGNANT
     Dosage: 220MG DAY 1
     Dates: start: 20140106
  2. TEMODAR [Suspect]
     Dates: start: 20140106

REACTIONS (1)
  - Dyspnoea [None]
